FAERS Safety Report 22351426 (Version 1)
Quarter: 2023Q2

REPORT INFORMATION
  Report Type: Spontaneous
  Country: FR (occurrence: FR)
  Receive Date: 20230522
  Receipt Date: 20230522
  Transmission Date: 20230721
  Serious: Yes (Hospitalization, Other)
  Sender: FDA-Public Use
  Company Number: None

PATIENT
  Age: 58 Year
  Sex: Female
  Weight: 61 kg

DRUGS (5)
  1. PRAMIPEXOLE DIHYDROCHLORIDE [Suspect]
     Active Substance: PRAMIPEXOLE DIHYDROCHLORIDE
     Indication: Restless legs syndrome
     Route: 048
     Dates: start: 2022, end: 20230227
  2. BACLOFEN [Suspect]
     Active Substance: BACLOFEN
     Indication: Blood alcohol decreased
     Dosage: 4X/J
     Route: 048
     Dates: start: 2022, end: 20230227
  3. MORPHINE SULFATE [Suspect]
     Active Substance: MORPHINE SULFATE
     Indication: Product used for unknown indication
     Dosage: 4/D
     Route: 048
     Dates: start: 20230222, end: 20230227
  4. KETOPROFEN [Suspect]
     Active Substance: KETOPROFEN
     Indication: Pain
     Dosage: 2/D
     Route: 048
     Dates: start: 20230224, end: 20230226
  5. CHLORPROMAZINE HYDROCHLORIDE [Suspect]
     Active Substance: CHLORPROMAZINE HYDROCHLORIDE
     Indication: Affective disorder
     Dosage: 1/D
     Route: 048
     Dates: start: 2022, end: 20230302

REACTIONS (2)
  - Faecaloma [Recovering/Resolving]
  - Colitis ischaemic [Recovering/Resolving]

NARRATIVE: CASE EVENT DATE: 20230226
